FAERS Safety Report 11194413 (Version 5)
Quarter: 2015Q3

REPORT INFORMATION
  Report Type: Report from Study
  Country: CO (occurrence: CO)
  Receive Date: 20150616
  Receipt Date: 20150803
  Transmission Date: 20151125
  Serious: Yes (Hospitalization, Other)
  Sender: FDA-Public Use
  Company Number: PHHY2015CO071742

PATIENT
  Age: 10 Year
  Sex: Female
  Weight: 20 kg

DRUGS (2)
  1. EXJADE [Suspect]
     Active Substance: DEFERASIROX
     Indication: THALASSAEMIA
     Dosage: 500 MG (25 MG/KG), QD
     Route: 065
  2. FOLIC ACID. [Concomitant]
     Active Substance: FOLIC ACID
     Indication: PRODUCT USED FOR UNKNOWN INDICATION
     Dosage: 500 MG, QD
     Route: 065

REACTIONS (7)
  - Arthralgia [Unknown]
  - Tachycardia [Unknown]
  - Immunodeficiency [Recovered/Resolved]
  - Red blood cell count decreased [Recovered/Resolved]
  - Asthenia [Recovered/Resolved]
  - Headache [Unknown]
  - Red blood cell count decreased [Unknown]

NARRATIVE: CASE EVENT DATE: 20150526
